FAERS Safety Report 4345321-6 (Version None)
Quarter: 2004Q2

REPORT INFORMATION
  Report Type: 
  Country: None (occurrence: None)
  Receive Date: 20040420
  Receipt Date: 20040413
  Transmission Date: 20050107
  Serious: Yes (Hospitalization)
  Sender: FDA-Public Use
  Company Number: FABR-10539

PATIENT
  Age: 47 Year
  Sex: Female
  Weight: 70 kg

DRUGS (5)
  1. FABRAZYME [Suspect]
     Indication: FABRY'S DISEASE
     Dosage: 1.1 MG/KG Q2WKS IV
     Route: 042
     Dates: start: 20021218
  2. WELLBUTRIN [Concomitant]
  3. NORVASC [Concomitant]
  4. CATAAPRES [Concomitant]
  5. ATENOLOL [Concomitant]

REACTIONS (4)
  - CONVULSION [None]
  - DIALYSIS [None]
  - HYPERTENSION [None]
  - TREATMENT NONCOMPLIANCE [None]
